FAERS Safety Report 10359058 (Version 1)
Quarter: 2014Q3

REPORT INFORMATION
  Report Type: Spontaneous
  Country: US (occurrence: None)
  Receive Date: 20140731
  Receipt Date: 20140731
  Transmission Date: 20150326
  Serious: Yes (Death)
  Sender: FDA-Public Use
  Company Number: None

PATIENT
  Age: 66 Year
  Sex: Male
  Weight: 137.89 kg

DRUGS (2)
  1. MORPHINE [Concomitant]
     Active Substance: MORPHINE
  2. EXPAREL [Suspect]
     Active Substance: BUPIVACAINE
     Indication: PAIN PROPHYLAXIS
     Dosage: 20ML ONE TIME LOCAL INFILTRATION
     Dates: start: 20140626, end: 20140626

REACTIONS (3)
  - Cardio-respiratory arrest [None]
  - Respiratory distress [None]
  - Brain injury [None]

NARRATIVE: CASE EVENT DATE: 20140626
